FAERS Safety Report 7974527-X (Version None)
Quarter: 2011Q4

REPORT INFORMATION
  Report Type: 
  Country: None (occurrence: None)
  Receive Date: 20111213
  Receipt Date: 20111212
  Transmission Date: 20120403
  Serious: Yes (Hospitalization, Other)
  Sender: FDA-Public Use
  Company Number: US-BAYER-2011-098595

PATIENT
  Age: 35 Year
  Sex: Female

DRUGS (1)
  1. MIRENA [Suspect]
     Indication: CONTRACEPTION
     Dosage: 20 MCG/24HR, CONT
     Route: 015
     Dates: start: 20100315, end: 20110906

REACTIONS (9)
  - RUPTURED ECTOPIC PREGNANCY [None]
  - ABDOMINAL PAIN [None]
  - PAIN [None]
  - FALL [None]
  - HAEMOGLOBIN DECREASED [None]
  - AMENORRHOEA [None]
  - GENITAL HAEMORRHAGE [None]
  - LOSS OF CONSCIOUSNESS [None]
  - OVARIAN CYST RUPTURED [None]
